FAERS Safety Report 17296350 (Version 2)
Quarter: 2020Q1

REPORT INFORMATION
  Report Type: Spontaneous
  Country: JP (occurrence: JP)
  Receive Date: 20200121
  Receipt Date: 20200210
  Transmission Date: 20200409
  Serious: Yes (Hospitalization)
  Sender: FDA-Public Use
  Company Number: JP-BIOCRYST PHARMACEUTICALS, INC.-2020BCR00011

PATIENT
  Age: 50 Year
  Sex: Male

DRUGS (4)
  1. RAPIACTA [Suspect]
     Active Substance: PERAMIVIR
     Indication: INFLUENZA
     Dosage: 300 MG, 1X/DAY
     Route: 042
     Dates: start: 20200102, end: 20200104
  2. ALEVIATIN [Concomitant]
     Active Substance: PHENYTOIN SODIUM
     Indication: ENCEPHALOPATHY
     Dosage: 250 MG, 1X/DAY
     Dates: start: 20200102, end: 20200102
  3. E KEPPRA [Suspect]
     Active Substance: LEVETIRACETAM
     Indication: ENCEPHALOPATHY
     Dosage: 1000 MG, 1X/DAY
     Dates: start: 20200102, end: 20200106
  4. SULBACILLIN [Suspect]
     Active Substance: AMPICILLIN SODIUM\SULBACTAM SODIUM
     Indication: ENCEPHALOPATHY
     Dosage: 6 G, 1X/DAY
     Dates: start: 20200102

REACTIONS (1)
  - Liver disorder [Recovered/Resolved]

NARRATIVE: CASE EVENT DATE: 20200104
